FAERS Safety Report 8406966-7 (Version None)
Quarter: 2012Q2

REPORT INFORMATION
  Report Type: 
  Country: None (occurrence: None)
  Receive Date: 20120604
  Receipt Date: 20120524
  Transmission Date: 20120825
  Serious: Yes (Congenital Anomaly)
  Sender: FDA-Public Use
  Company Number: BR-SANOFI-AVENTIS-2012SA037344

PATIENT
  Sex: Male
  Weight: 3.13 kg

DRUGS (10)
  1. MULTI-VITAMINS [Concomitant]
     Indication: PREGNANCY
     Dosage: DOSE:1 UNIT(S)
     Route: 064
     Dates: start: 20110401
  2. ISOCONAZOLE [Concomitant]
     Route: 064
     Dates: start: 20110521
  3. HOMEOPATIC PREPARATION [Concomitant]
     Dosage: DOSE:8 UNIT(S)
     Route: 064
     Dates: start: 20110301
  4. LOVAZA [Concomitant]
  5. CALCIUM [Concomitant]
     Indication: COW'S MILK INTOLERANCE
     Dosage: DOSE:1 UNIT(S)
     Route: 064
     Dates: start: 20110401
  6. MECLIZINE HYDROCHLORIDE [Concomitant]
     Indication: NAUSEA
     Dosage: DOSE:1 UNIT(S)
     Route: 064
     Dates: start: 20110511
  7. HOMEOPATIC PREPARATION [Concomitant]
     Route: 064
     Dates: start: 20110201
  8. FOLIC ACID [Concomitant]
     Indication: PROPHYLAXIS
     Dosage: DOSE:1 UNIT(S)
     Route: 064
     Dates: start: 20110401
  9. ENOXAPARIN SODIUM [Suspect]
     Indication: PROPHYLAXIS
     Route: 064
     Dates: start: 20110525, end: 20111207
  10. HOMEOPATIC PREPARATION [Concomitant]
     Indication: SEDATIVE THERAPY
     Dosage: DOSE:5 UNIT(S)
     Route: 064
     Dates: start: 20110301

REACTIONS (3)
  - HYPOSPADIAS [None]
  - UMBILICAL HERNIA [None]
  - INGUINAL HERNIA [None]
